FAERS Safety Report 21186539 (Version 2)
Quarter: 2022Q3

REPORT INFORMATION
  Report Type: Report from Study
  Country: US (occurrence: US)
  Receive Date: 20220808
  Receipt Date: 20220822
  Transmission Date: 20221027
  Serious: Yes (Death, Hospitalization)
  Sender: FDA-Public Use
  Company Number: US-OTSUKA-2022_039785

PATIENT
  Sex: Female

DRUGS (1)
  1. DEXTROMETHORPHAN HYDROBROMIDE\QUINIDINE SULFATE [Suspect]
     Active Substance: DEXTROMETHORPHAN HYDROBROMIDE\QUINIDINE SULFATE
     Indication: Affect lability
     Dosage: (20MG/10MG)
     Route: 065
     Dates: start: 20210727, end: 20211202

REACTIONS (5)
  - Peripheral swelling [Unknown]
  - Cardio-respiratory arrest [Fatal]
  - Sepsis [Fatal]
  - Dementia [Fatal]
  - Therapeutic product effect decreased [Unknown]
